FAERS Safety Report 18390891 (Version 1)
Quarter: 2020Q4

REPORT INFORMATION
  Report Type: Spontaneous
  Country: US (occurrence: US)
  Receive Date: 20201015
  Receipt Date: 20201015
  Transmission Date: 20210114
  Serious: Yes (Hospitalization)
  Sender: FDA-Public Use
  Company Number: None

PATIENT
  Age: 69 Year
  Sex: Male
  Weight: 100 kg

DRUGS (2)
  1. DAUNORUBICIN [Suspect]
     Active Substance: DAUNORUBICIN
     Dates: end: 20200801
  2. CYTARABINE. [Suspect]
     Active Substance: CYTARABINE
     Dates: end: 20200804

REACTIONS (4)
  - Pyrexia [None]
  - Cough [None]
  - Condition aggravated [None]
  - Pneumonia fungal [None]

NARRATIVE: CASE EVENT DATE: 20200814
